FAERS Safety Report 8457380-X (Version None)
Quarter: 2012Q2

REPORT INFORMATION
  Report Type: 
  Country: None (occurrence: None)
  Receive Date: 20120621
  Receipt Date: 20120615
  Transmission Date: 20120825
  Serious: No
  Sender: FDA-Public Use
  Company Number: US-PFIZER INC-2012122051

PATIENT
  Sex: Female

DRUGS (1)
  1. ZITHROMAX [Suspect]
     Dosage: 250 MG, UNK

REACTIONS (5)
  - DRUG HYPERSENSITIVITY [None]
  - LACTOSE INTOLERANCE [None]
  - GASTROINTESTINAL PAIN [None]
  - FLATULENCE [None]
  - NAUSEA [None]
